FAERS Safety Report 4878948-3 (Version None)
Quarter: 2006Q1

REPORT INFORMATION
  Report Type: 
  Country: None (occurrence: None)
  Receive Date: 20060112
  Receipt Date: 20060103
  Transmission Date: 20060701
  Serious: Yes (Hospitalization, Other)
  Sender: FDA-Public Use
  Company Number: US-MERCK-0601USA00467

PATIENT
  Age: 51 Year
  Sex: Female
  Weight: 71 kg

DRUGS (8)
  1. ZOCOR [Suspect]
     Indication: HYPERLIPIDAEMIA
     Route: 048
     Dates: start: 19991229
  2. ZOCOR [Suspect]
     Route: 048
  3. PROZAC [Concomitant]
     Route: 048
  4. XANAX [Concomitant]
     Route: 048
  5. PREMARIN [Concomitant]
     Route: 048
  6. PRILOSEC [Concomitant]
     Route: 048
  7. NITRO [Concomitant]
     Route: 061
  8. MIDRIN [Concomitant]
     Route: 065

REACTIONS (18)
  - ANXIETY [None]
  - BURSITIS [None]
  - CHEST PAIN [None]
  - DIZZINESS [None]
  - FATIGUE [None]
  - GASTRITIS [None]
  - GASTROENTERITIS [None]
  - HIATUS HERNIA [None]
  - INSOMNIA [None]
  - MUSCLE SPASMS [None]
  - NON-CARDIAC CHEST PAIN [None]
  - PAIN IN EXTREMITY [None]
  - PALPITATIONS [None]
  - PERIPHERAL VASCULAR DISORDER [None]
  - PLEURISY [None]
  - ROTATOR CUFF SYNDROME [None]
  - TENDONITIS [None]
  - WEIGHT INCREASED [None]
